FAERS Safety Report 5706932-6 (Version None)
Quarter: 2008Q2

REPORT INFORMATION
  Report Type: 
  Country: None (occurrence: None)
  Receive Date: 20080415
  Receipt Date: 20080415
  Transmission Date: 20081010
  Serious: Yes (Other)
  Sender: FDA-Public Use
  Company Number: None

PATIENT
  Age: 50 Year
  Sex: Male
  Weight: 114.76 kg

DRUGS (2)
  1. ZIAC [Suspect]
     Indication: CHEST PAIN
     Dates: start: 20070301, end: 20070320
  2. ZIAC [Suspect]
     Indication: NAUSEA
     Dates: start: 20070301, end: 20070320

REACTIONS (3)
  - CHEST PAIN [None]
  - DYSPNOEA [None]
  - NAUSEA [None]
